FAERS Safety Report 6188125-4 (Version None)
Quarter: 2009Q2

REPORT INFORMATION
  Report Type: 
  Country: None (occurrence: None)
  Receive Date: 20090513
  Receipt Date: 20070409
  Transmission Date: 20091009
  Serious: No
  Sender: FDA-Public Use
  Company Number: A0721192A

PATIENT
  Age: 61 Year
  Sex: Male

DRUGS (1)
  1. DYNACIRC CR [Suspect]
     Indication: BLOOD PRESSURE
     Dosage: 10MG PER DAY
     Route: 048
     Dates: start: 20070201

REACTIONS (3)
  - CONTUSION [None]
  - JOINT INJURY [None]
  - ROAD TRAFFIC ACCIDENT [None]
